FAERS Safety Report 22305777 (Version 1)
Quarter: 2023Q2

REPORT INFORMATION
  Report Type: Other
  Country: FR (occurrence: FR)
  Receive Date: 20230510
  Receipt Date: 20230510
  Transmission Date: 20230722
  Serious: Yes (Death, Other)
  Sender: FDA-Public Use
  Company Number: None

PATIENT
  Age: 48 Year
  Sex: Female

DRUGS (1)
  1. IBUPROFEN [Suspect]
     Active Substance: IBUPROFEN
     Indication: Pain
     Dosage: NON RENSEIGN?E
     Route: 048
     Dates: start: 202212, end: 20230101

REACTIONS (2)
  - Mastoiditis [Fatal]
  - Septic shock [Fatal]

NARRATIVE: CASE EVENT DATE: 20221201
